FAERS Safety Report 8388651-3 (Version None)
Quarter: 2012Q2

REPORT INFORMATION
  Report Type: 
  Country: None (occurrence: None)
  Receive Date: 20120525
  Receipt Date: 20120515
  Transmission Date: 20120825
  Serious: Yes (Hospitalization, Other)
  Sender: FDA-Public Use
  Company Number: US-MERCK-1102USA00900

PATIENT
  Age: 60 Year
  Sex: Female

DRUGS (3)
  1. FOSAMAX [Suspect]
     Route: 048
     Dates: start: 20010101, end: 20031203
  2. BONIVA [Suspect]
     Route: 048
     Dates: start: 20061205, end: 20100304
  3. FOSAMAX [Suspect]
     Indication: BONE DENSITY DECREASED
     Route: 048
     Dates: start: 19950522

REACTIONS (19)
  - OSTEONECROSIS [None]
  - ROTATOR CUFF SYNDROME [None]
  - ANAEMIA POSTOPERATIVE [None]
  - HYPOKALAEMIA [None]
  - PAIN IN EXTREMITY [None]
  - GASTROOESOPHAGEAL REFLUX DISEASE [None]
  - OSTEOARTHRITIS [None]
  - SPONDYLOLISTHESIS [None]
  - PAIN IN JAW [None]
  - RHINITIS ALLERGIC [None]
  - FEMUR FRACTURE [None]
  - BLOOD CHOLESTEROL INCREASED [None]
  - BODY HEIGHT DECREASED [None]
  - TOOTH DISORDER [None]
  - LUMBAR RADICULOPATHY [None]
  - OSTEONECROSIS OF JAW [None]
  - DENTAL CARIES [None]
  - HYPONATRAEMIA [None]
  - SPINAL COLUMN STENOSIS [None]
